FAERS Safety Report 18797565 (Version 4)
Quarter: 2021Q2

REPORT INFORMATION
  Report Type: Report from Study
  Country: GH (occurrence: GH)
  Receive Date: 20210127
  Receipt Date: 20210623
  Transmission Date: 20210717
  Serious: Yes (Other)
  Sender: FDA-Public Use
  Company Number: NVSC2021GH015960

PATIENT
  Age: 53 Year
  Sex: Male

DRUGS (3)
  1. UPERIO [Suspect]
     Active Substance: SACUBITRIL\VALSARTAN
     Indication: CARDIAC FAILURE
     Dosage: 25 MG, QOD
     Route: 048
     Dates: start: 20210119
  2. UPERIO [Suspect]
     Active Substance: SACUBITRIL\VALSARTAN
     Dosage: 25 MG, QOD
     Route: 048
     Dates: start: 20210120
  3. UPERIO [Suspect]
     Active Substance: SACUBITRIL\VALSARTAN
     Dosage: 25 MG, QOD
     Route: 048

REACTIONS (5)
  - Prescribed underdose [Not Recovered/Not Resolved]
  - Product availability issue [Unknown]
  - Wrong technique in product usage process [Not Recovered/Not Resolved]
  - Musculoskeletal chest pain [Unknown]
  - Inappropriate schedule of product administration [Not Recovered/Not Resolved]
